FAERS Safety Report 9450784 (Version 1)
Quarter: 2013Q3

REPORT INFORMATION
  Report Type: Spontaneous
  Country: US (occurrence: US)
  Receive Date: 20130809
  Receipt Date: 20130809
  Transmission Date: 20140515
  Serious: No
  Sender: FDA-Public Use
  Company Number: US-AMGEN-USASP2013031279

PATIENT
  Age: 65 Year
  Sex: Female

DRUGS (6)
  1. NEUPOGEN [Suspect]
     Indication: PRODUCT USED FOR UNKNOWN INDICATION
     Dosage: UNK
  2. NEULASTA [Suspect]
     Indication: INFECTION PROPHYLAXIS
     Dosage: 6 MG, UNK
     Dates: start: 20130426
  3. CARBOPLATIN [Concomitant]
     Indication: OVARIAN CANCER
     Dosage: UNK
  4. DOCETAXEL [Concomitant]
     Indication: OVARIAN CANCER
     Dosage: UNK
  5. ZANTAC [Concomitant]
     Indication: PREMEDICATION
     Dosage: UNK
  6. SINGULAIR [Concomitant]
     Indication: PREMEDICATION
     Dosage: UNK

REACTIONS (1)
  - Bone pain [Unknown]
